FAERS Safety Report 8520237-X (Version None)
Quarter: 2012Q3

REPORT INFORMATION
  Report Type: 
  Country: None (occurrence: None)
  Receive Date: 20120719
  Receipt Date: 20120713
  Transmission Date: 20120928
  Serious: Yes (Other)
  Sender: FDA-Public Use
  Company Number: US-AMGEN-USASP2011013115

PATIENT
  Age: 62 Year
  Sex: Male
  Weight: 97.959 kg

DRUGS (11)
  1. CATAPRES [Concomitant]
     Dosage: UNK UNK, BID
  2. TRAMADOL HCL [Concomitant]
     Dosage: 50 MG, PRN
  3. ENBREL [Suspect]
     Indication: RHEUMATOID ARTHRITIS
     Dosage: 50 MG, QWK
     Route: 058
  4. PREDNISONE [Concomitant]
     Dosage: 3 MG, QD
  5. ENBREL [Suspect]
     Dosage: 50 MG, QWK
     Route: 058
     Dates: start: 19980101, end: 20110223
  6. ETODOLAC [Concomitant]
     Dosage: 1200 MG, QD
  7. TOPROL-XL [Concomitant]
     Dosage: 250 MG, BID
  8. DIOVAN HCT [Concomitant]
     Dosage: UNK UNK, QD
  9. AMLODIPINE [Concomitant]
     Dosage: 10 MG, QD
  10. CALCIUM 600 + D [Concomitant]
     Dosage: UNK UNK, BID
  11. PRILOSEC [Concomitant]
     Dosage: 20 MG, QD

REACTIONS (1)
  - CATARACT [None]
